FAERS Safety Report 23485849 (Version 2)
Quarter: 2024Q1

REPORT INFORMATION
  Report Type: Spontaneous
  Country: FR (occurrence: FR)
  Receive Date: 20240206
  Receipt Date: 20240219
  Transmission Date: 20240410
  Serious: Yes (Other)
  Sender: FDA-Public Use
  Company Number: FR-SANOFI-01892288

PATIENT
  Age: 57 Year
  Sex: Female

DRUGS (6)
  1. CHILDREN^S ALLEGRA ALLERGY [Suspect]
     Active Substance: FEXOFENADINE HYDROCHLORIDE
     Indication: Pruritus
     Dosage: UNK
  2. XYZAL ALLERGY 24HR [Suspect]
     Active Substance: LEVOCETIRIZINE DIHYDROCHLORIDE
     Indication: Photosensitivity reaction
     Dosage: 5 MG, QD
  3. DIAZEPAM [Suspect]
     Active Substance: DIAZEPAM
     Indication: Insomnia
     Dosage: 1 MG, BID
  4. DIAZEPAM [Suspect]
     Active Substance: DIAZEPAM
     Indication: Rash erythematous
  5. DIAZEPAM [Suspect]
     Active Substance: DIAZEPAM
     Indication: Pruritus
  6. PLAQUENIL [Suspect]
     Active Substance: HYDROXYCHLOROQUINE SULFATE
     Indication: Polymorphic light eruption
     Dosage: UNK
     Dates: end: 202312

REACTIONS (5)
  - Pruritus [Recovering/Resolving]
  - Toxic skin eruption [Unknown]
  - Drug ineffective [Unknown]
  - Insomnia [Recovering/Resolving]
  - Rash erythematous [Recovering/Resolving]

NARRATIVE: CASE EVENT DATE: 20231201
